FAERS Safety Report 7021604-6 (Version None)
Quarter: 2010Q3

REPORT INFORMATION
  Report Type: 
  Country: None (occurrence: None)
  Receive Date: 20100928
  Receipt Date: 20100917
  Transmission Date: 20110219
  Serious: Yes (Hospitalization, Other)
  Sender: FDA-Public Use
  Company Number: 2010AP002026

PATIENT
  Age: 28 Year
  Sex: Female

DRUGS (6)
  1. OMEPRAZOLE [Suspect]
     Indication: ABDOMINAL PAIN UPPER
     Dosage: 20 MG; PO
     Route: 048
     Dates: start: 20100722, end: 20100726
  2. OMEPRAZOLE [Suspect]
     Indication: VOMITING
     Dosage: 20 MG; PO
     Route: 048
     Dates: start: 20100722, end: 20100726
  3. BUDESONIDE [Concomitant]
  4. DOMPERIDONE (DOMPERIDONE) [Concomitant]
  5. SALBUTAMOL (SALBUTAMOL) [Concomitant]
  6. TEMAZEPAM [Concomitant]

REACTIONS (3)
  - HAEMATEMESIS [None]
  - HEPATITIS ACUTE [None]
  - WEIGHT INCREASED [None]
